FAERS Safety Report 6607850-1 (Version None)
Quarter: 2010Q1

REPORT INFORMATION
  Report Type: 
  Country: None (occurrence: None)
  Receive Date: 20100225
  Receipt Date: 20100225
  Transmission Date: 20100710
  Serious: No
  Sender: FDA-Public Use
  Company Number: None

PATIENT
  Age: 63 Year
  Sex: Male
  Weight: 86 kg

DRUGS (1)
  1. ABATACEPT [Suspect]
     Dosage: 750 MG ONCE IV
     Route: 042
     Dates: start: 20091102, end: 20100208

REACTIONS (2)
  - DYSPNOEA [None]
  - URTICARIA [None]
